FAERS Safety Report 4509426-9 (Version None)
Quarter: 2004Q4

REPORT INFORMATION
  Report Type: 
  Country: None (occurrence: None)
  Receive Date: 20041025
  Receipt Date: 20040728
  Transmission Date: 20050328
  Serious: Yes (Other)
  Sender: FDA-Public Use
  Company Number: US-JNJFOC-20040608533

PATIENT
  Age: 43 Year
  Sex: Female
  Weight: 86.1834 kg

DRUGS (4)
  1. REMICADE [Suspect]
     Indication: CROHN'S DISEASE
     Dosage: INTRAVENOUS
     Route: 042
     Dates: start: 20030201, end: 20030701
  2. AZATHIOPRINE [Concomitant]
  3. PREDNISONE [Concomitant]
  4. PENTASA [Concomitant]

REACTIONS (3)
  - DRUG INEFFECTIVE [None]
  - INTESTINAL OBSTRUCTION [None]
  - INTESTINAL STENOSIS [None]
